FAERS Safety Report 8163746-8 (Version None)
Quarter: 2012Q1

REPORT INFORMATION
  Report Type: 
  Country: None (occurrence: None)
  Receive Date: 20120224
  Receipt Date: 20120216
  Transmission Date: 20120608
  Serious: Yes (Hospitalization, Other)
  Sender: FDA-Public Use
  Company Number: US-EISAI INC-E3810-05318-SPO-US

PATIENT
  Sex: Female
  Weight: 52 kg

DRUGS (1)
  1. ACIPHEX [Suspect]
     Route: 048

REACTIONS (4)
  - VITAMIN D DEFICIENCY [None]
  - ABDOMINAL PAIN UPPER [None]
  - OSTEOPOROSIS [None]
  - DIVERTICULITIS [None]
